FAERS Safety Report 5148127-3 (Version None)
Quarter: 2006Q4

REPORT INFORMATION
  Report Type: 
  Country: None (occurrence: None)
  Receive Date: 20061110
  Receipt Date: 20061018
  Transmission Date: 20070319
  Serious: Yes (Life-Threatening, Hospitalization)
  Sender: FDA-Public Use
  Company Number: DE-ROCHE-467941

PATIENT
  Age: 45 Year
  Sex: Female
  Weight: 107 kg

DRUGS (5)
  1. CAPECITABINE [Suspect]
     Indication: BREAST CANCER METASTATIC
     Dosage: DOSAGE REGIMEN REPORTED AS 400MG/ DAY FOR 14 DAYS THREE WEEKLY.
     Route: 048
     Dates: start: 20061004, end: 20061017
  2. EPOETIN BETA [Suspect]
     Route: 058
     Dates: start: 20061004, end: 20061004
  3. TAXOL [Suspect]
     Indication: BREAST CANCER METASTATIC
     Route: 042
     Dates: start: 20060913, end: 20061011
  4. EPIRUBICIN [Suspect]
     Indication: BREAST CANCER METASTATIC
     Route: 042
     Dates: start: 20060719, end: 20060803
  5. CYCLOPHOSPHAMIDE [Suspect]
     Indication: BREAST CANCER METASTATIC
     Route: 042
     Dates: start: 20060719, end: 20060803

REACTIONS (3)
  - PNEUMONIA [None]
  - PULMONARY EMBOLISM [None]
  - THROMBOSIS [None]
